FAERS Safety Report 20924097 (Version 1)
Quarter: 2022Q2

REPORT INFORMATION
  Report Type: Report from Study
  Country: AU (occurrence: AU)
  Receive Date: 20220607
  Receipt Date: 20220607
  Transmission Date: 20220721
  Serious: Yes (Death, Hospitalization)
  Sender: FDA-Public Use
  Company Number: AU-MYLANLABS-2022M1042673

PATIENT
  Age: 38 Year
  Sex: Male

DRUGS (8)
  1. MIRTAZAPINE [Suspect]
     Active Substance: MIRTAZAPINE
     Indication: Drug withdrawal syndrome
     Dosage: UNK
  2. MIRTAZAPINE [Suspect]
     Active Substance: MIRTAZAPINE
     Indication: Alcohol withdrawal syndrome
  3. DIAZEPAM [Suspect]
     Active Substance: DIAZEPAM
     Indication: Drug withdrawal syndrome
     Dosage: UNK
  4. DIAZEPAM [Suspect]
     Active Substance: DIAZEPAM
     Indication: Alcohol withdrawal syndrome
  5. BUPRENORPHINE [Suspect]
     Active Substance: BUPRENORPHINE
     Indication: Drug withdrawal syndrome
     Dosage: UNK, PRN, 4-8 MG
     Route: 060
  6. BUPRENORPHINE [Suspect]
     Active Substance: BUPRENORPHINE
     Indication: Alcohol withdrawal syndrome
  7. QUETIAPINE [Suspect]
     Active Substance: QUETIAPINE
     Indication: Drug withdrawal syndrome
     Dosage: UNK
  8. QUETIAPINE [Suspect]
     Active Substance: QUETIAPINE
     Indication: Alcohol withdrawal syndrome

REACTIONS (3)
  - Somnolence [Fatal]
  - Respiratory depression [Fatal]
  - Product communication issue [Fatal]
